FAERS Safety Report 24328350 (Version 2)
Quarter: 2024Q3

REPORT INFORMATION
  Report Type: Spontaneous
  Country: US (occurrence: US)
  Receive Date: 20240917
  Receipt Date: 20240926
  Transmission Date: 20241016
  Serious: No
  Sender: ABBVIE
  Company Number: US-ABBVIE-5919973

PATIENT
  Age: 19 Year

DRUGS (1)
  1. CREON [Suspect]
     Active Substance: PANCRELIPASE AMYLASE\PANCRELIPASE LIPASE\PANCRELIPASE PROTEASE
     Indication: Cystic fibrosis
     Dosage: 1 EVERY MEAL ?FORM STRENGTH 24000 UNIT
     Route: 048

REACTIONS (3)
  - Abdominal distension [Unknown]
  - Drug ineffective [Unknown]
  - Abdominal pain [Unknown]
